FAERS Safety Report 16498616 (Version 1)
Quarter: 2019Q2

REPORT INFORMATION
  Report Type: Spontaneous
  Country: US (occurrence: US)
  Receive Date: 20190629
  Receipt Date: 20190629
  Transmission Date: 20190711
  Serious: Yes (Death)
  Sender: FDA-Public Use
  Company Number: PHEH2019US027432

PATIENT
  Age: 67 Year
  Sex: Female

DRUGS (2)
  1. HYCAMTIN [Suspect]
     Active Substance: TOPOTECAN HYDROCHLORIDE
     Indication: LUNG NEOPLASM
     Dosage: 2 DF, (DAYS 1-5) (0.25 MG)
     Route: 048
     Dates: start: 20190524
  2. HYCAMTIN [Suspect]
     Active Substance: TOPOTECAN HYDROCHLORIDE
     Dosage: 3 DF, (DAYS 1-5) (STRENGTH- 1 MG)
     Route: 048
     Dates: start: 20190524

REACTIONS (1)
  - Death [Fatal]

NARRATIVE: CASE EVENT DATE: 20190620
